FAERS Safety Report 11168339 (Version 1)
Quarter: 2015Q2

REPORT INFORMATION
  Report Type: Spontaneous
  Country: US (occurrence: None)
  Receive Date: 20150515
  Receipt Date: 20150515
  Transmission Date: 20150821
  Serious: Yes (Hospitalization)
  Sender: FDA-Public Use
  Company Number: 2014008442

PATIENT
  Age: 60 Year
  Sex: Male
  Weight: 61.7 kg

DRUGS (3)
  1. NUBAIN [Suspect]
     Active Substance: NALBUPHINE HYDROCHLORIDE
     Indication: PAIN
     Route: 042
  2. CIMZIA [Suspect]
     Active Substance: CERTOLIZUMAB PEGOL
     Indication: CROHN^S DISEASE
     Route: 058
     Dates: start: 20090520
  3. CIMZIA [Suspect]
     Active Substance: CERTOLIZUMAB PEGOL
     Route: 058
     Dates: start: 20090520

REACTIONS (6)
  - Hyperhidrosis [None]
  - Vomiting [None]
  - Constipation [None]
  - Intestinal obstruction [None]
  - Scar [None]
  - Dizziness [None]

NARRATIVE: CASE EVENT DATE: 201407
